FAERS Safety Report 4940436-3 (Version None)
Quarter: 2006Q1

REPORT INFORMATION
  Report Type: 
  Country: None (occurrence: None)
  Receive Date: 20060131
  Receipt Date: 20051129
  Transmission Date: 20060701
  Serious: No
  Sender: FDA-Public Use
  Company Number: 200520157US

PATIENT

DRUGS (1)
  1. KETEK [Suspect]
     Indication: SINUSITIS
     Dosage: PO
     Route: 048

REACTIONS (1)
  - AGEUSIA [None]
